FAERS Safety Report 7722348-5 (Version None)
Quarter: 2011Q3

REPORT INFORMATION
  Report Type: 
  Country: None (occurrence: None)
  Receive Date: 20110831
  Receipt Date: 20110831
  Transmission Date: 20111222
  Serious: Yes (Life-Threatening, Hospitalization, Other)
  Sender: FDA-Public Use
  Company Number: PH-BAYER-2011-078986

PATIENT
  Age: 14 Year
  Sex: Female

DRUGS (1)
  1. ULTRAVIST 150 [Suspect]
     Indication: COMPUTERISED TOMOGRAM
     Dosage: 50 ML, ONCE
     Route: 040
     Dates: start: 20110828, end: 20110828

REACTIONS (4)
  - HEADACHE [None]
  - HYPOTENSION [None]
  - OXYGEN SATURATION DECREASED [None]
  - VISION BLURRED [None]
